FAERS Safety Report 21517166 (Version 2)
Quarter: 2022Q4

REPORT INFORMATION
  Report Type: Spontaneous
  Country: US (occurrence: US)
  Receive Date: 20221028
  Receipt Date: 20221124
  Transmission Date: 20230113
  Serious: No
  Sender: FDA-Public Use
  Company Number: US-JNJFOC-20221026924

PATIENT
  Age: 76 Year
  Sex: Female
  Weight: 66.738 kg

DRUGS (2)
  1. TREMFYA [Suspect]
     Active Substance: GUSELKUMAB
     Indication: Psoriatic arthropathy
     Route: 065
     Dates: start: 20220920
  2. TREMFYA [Suspect]
     Active Substance: GUSELKUMAB

REACTIONS (3)
  - Oral pain [Unknown]
  - Tongue ulceration [Unknown]
  - Gingival swelling [Unknown]

NARRATIVE: CASE EVENT DATE: 20221007
